FAERS Safety Report 23792682 (Version 1)
Quarter: 2024Q2

REPORT INFORMATION
  Report Type: Spontaneous
  Country: US (occurrence: US)
  Receive Date: 20240429
  Receipt Date: 20240429
  Transmission Date: 20240716
  Serious: No
  Sender: FDA-Public Use
  Company Number: US-JNJFOC-20240436419

PATIENT
  Age: 55 Year
  Sex: Female

DRUGS (1)
  1. ZYRTEC [Suspect]
     Active Substance: CETIRIZINE HYDROCHLORIDE
     Indication: Hypersensitivity
     Route: 065
     Dates: end: 202404

REACTIONS (2)
  - Hypersensitivity [Recovering/Resolving]
  - Expired product administered [Unknown]

NARRATIVE: CASE EVENT DATE: 20240401
